FAERS Safety Report 8393941-4 (Version None)
Quarter: 2012Q2

REPORT INFORMATION
  Report Type: 
  Country: None (occurrence: None)
  Receive Date: 20120517
  Receipt Date: 20120515
  Transmission Date: 20120825
  Serious: Yes (Hospitalization, Other)
  Sender: FDA-Public Use
  Company Number: 2009SP016958

PATIENT
  Age: 39 Year
  Sex: Female
  Weight: 113.3993 kg

DRUGS (9)
  1. NUVARING [Suspect]
     Indication: CONTRACEPTION
     Dosage: QM;VAG
     Route: 067
     Dates: start: 20060801, end: 20061113
  2. CLARINEX [Concomitant]
  3. DYAZIDE [Concomitant]
  4. ATACAND HCT [Concomitant]
  5. FOLIC ACID [Concomitant]
  6. PREDNISONE [Concomitant]
  7. CLOTRIMAZOLE [Concomitant]
  8. METHOTREXATE [Concomitant]
  9. CEFADROZIL [Concomitant]

REACTIONS (19)
  - DEEP VEIN THROMBOSIS [None]
  - CHEST DISCOMFORT [None]
  - LEFT VENTRICULAR HYPERTROPHY [None]
  - SALPINGITIS [None]
  - DYSFUNCTIONAL UTERINE BLEEDING [None]
  - LUNG NEOPLASM [None]
  - MITRAL VALVE INCOMPETENCE [None]
  - PULMONARY EMBOLISM [None]
  - HEPATIC STEATOSIS [None]
  - RENAL CYST [None]
  - ENDOMETRIAL HYPERPLASIA [None]
  - DILATATION VENTRICULAR [None]
  - ADNEXA UTERI CYST [None]
  - VENTRICULAR HYPOKINESIA [None]
  - TRICUSPID VALVE INCOMPETENCE [None]
  - PULMONARY VALVE INCOMPETENCE [None]
  - PRESYNCOPE [None]
  - CERVICAL DYSPLASIA [None]
  - CHOLELITHIASIS [None]
